FAERS Safety Report 8046099-5 (Version None)
Quarter: 2012Q1

REPORT INFORMATION
  Report Type: 
  Country: None (occurrence: None)
  Receive Date: 20120113
  Receipt Date: 20120110
  Transmission Date: 20120608
  Serious: No
  Sender: FDA-Public Use
  Company Number: US-PFIZER INC-2012007745

PATIENT
  Sex: Female
  Weight: 63.492 kg

DRUGS (2)
  1. ADDERALL 5 [Concomitant]
     Dosage: UNK
  2. EFFEXOR [Suspect]
     Indication: DEPRESSION
     Dosage: 37.5 MG, 2X/DAY
     Route: 048
     Dates: start: 20110101, end: 20120106

REACTIONS (4)
  - MOOD SWINGS [None]
  - WITHDRAWAL SYNDROME [None]
  - NERVOUS SYSTEM DISORDER [None]
  - MUSCLE TWITCHING [None]
